FAERS Safety Report 12990749 (Version 1)
Quarter: 2016Q4

REPORT INFORMATION
  Report Type: Spontaneous
  Country: US (occurrence: US)
  Receive Date: 20161201
  Receipt Date: 20161201
  Transmission Date: 20170207
  Serious: Yes (Death, Other)
  Sender: FDA-Public Use
  Company Number: None

PATIENT
  Age: 38 Year
  Sex: Male
  Weight: 80.81 kg

DRUGS (3)
  1. WARFARIN 4 MG [Suspect]
     Active Substance: WARFARIN
     Indication: THYROID DISORDER
     Route: 048
     Dates: start: 19991121, end: 19991221
  2. WARFARIN 4 MG [Suspect]
     Active Substance: WARFARIN
     Indication: THROMBOSIS
     Route: 048
     Dates: start: 19991121, end: 19991221
  3. WARFARIN 4 MG [Suspect]
     Active Substance: WARFARIN
     Indication: TOXIC GOITRE
     Route: 048
     Dates: start: 19991121, end: 19991221

REACTIONS (6)
  - Metal poisoning [None]
  - Hepatic necrosis [None]
  - Abdominal pain upper [None]
  - Myocardial infarction [None]
  - Pulmonary oedema [None]
  - Chest pain [None]

NARRATIVE: CASE EVENT DATE: 19991221
